FAERS Safety Report 16325736 (Version 2)
Quarter: 2020Q2

REPORT INFORMATION
  Report Type: Spontaneous
  Country: US (occurrence: US)
  Receive Date: 20190517
  Receipt Date: 20200610
  Transmission Date: 20200713
  Serious: No
  Sender: FDA-Public Use
  Company Number: US-COLLEGIUM PHARMACEUTICAL, INC.-2019CGM00078

PATIENT
  Sex: Male

DRUGS (1)
  1. XTAMPZA ER [Suspect]
     Active Substance: OXYCODONE
     Dosage: UNK

REACTIONS (3)
  - Medication crystals in urine present [Recovered/Resolved]
  - Product substitution issue [Recovered/Resolved]
  - Urinary sediment present [Recovered/Resolved]
